FAERS Safety Report 18511415 (Version 1)
Quarter: 2020Q4

REPORT INFORMATION
  Report Type: Spontaneous
  Country: US (occurrence: US)
  Receive Date: 20201117
  Receipt Date: 20201117
  Transmission Date: 20210114
  Serious: Yes (Hospitalization)
  Sender: FDA-Public Use
  Company Number: None

PATIENT
  Age: 46 Year
  Sex: Female

DRUGS (1)
  1. XELJANZ [Suspect]
     Active Substance: TOFACITINIB CITRATE
     Indication: SJOGREN^S SYNDROME
     Route: 048
     Dates: start: 20200407

REACTIONS (2)
  - COVID-19 [None]
  - Pneumonia [None]

NARRATIVE: CASE EVENT DATE: 20201019
